FAERS Safety Report 5512989-8 (Version None)
Quarter: 2007Q4

REPORT INFORMATION
  Report Type: 
  Country: None (occurrence: None)
  Receive Date: 20071112
  Receipt Date: 20071105
  Transmission Date: 20080405
  Serious: Yes (Other)
  Sender: FDA-Public Use
  Company Number: US-ASTRAZENECA-2007UW24182

PATIENT
  Age: 2 Year
  Sex: Male
  Weight: 13.2 kg

DRUGS (7)
  1. PULMICORT RESPULES [Suspect]
     Indication: ASTHMA
     Route: 055
     Dates: start: 20060101
  2. ALLEGRA [Concomitant]
  3. SINGULAIR [Concomitant]
  4. NEOCATE [Concomitant]
  5. PREVACID [Concomitant]
  6. MIRALAX [Concomitant]
  7. MULTI-VITAMIN [Concomitant]

REACTIONS (2)
  - ASTHMA [None]
  - HYPERSENSITIVITY [None]
